FAERS Safety Report 25058395 (Version 2)
Quarter: 2025Q2

REPORT INFORMATION
  Report Type: Spontaneous
  Country: JP (occurrence: JP)
  Receive Date: 20250310
  Receipt Date: 20250407
  Transmission Date: 20250717
  Serious: Yes (Other)
  Sender: MERCK SHARP AND DOHME
  Company Number: JP-009507513-2261864

PATIENT
  Age: 67 Year
  Sex: Female

DRUGS (4)
  1. CILASTATIN SODIUM\IMIPENEM [Suspect]
     Active Substance: CILASTATIN SODIUM\IMIPENEM
  2. AMIKACIN [Suspect]
     Active Substance: AMIKACIN
  3. CLARITHROMYCIN [Suspect]
     Active Substance: CLARITHROMYCIN
  4. SITAFLOXACIN [Suspect]
     Active Substance: SITAFLOXACIN

REACTIONS (2)
  - Drug-induced liver injury [Recovering/Resolving]
  - Product use in unapproved indication [Unknown]
